FAERS Safety Report 8112084-8 (Version None)
Quarter: 2011Q4

REPORT INFORMATION
  Report Type: 
  Country: None (occurrence: None)
  Receive Date: 20111223
  Receipt Date: 20101110
  Transmission Date: 20120403
  Serious: Yes (Disabling)
  Sender: FDA-Public Use
  Company Number: PHHY2010US66573

PATIENT
  Age: 72 Year
  Sex: Female

DRUGS (1)
  1. FEMARA [Suspect]
     Indication: BREAST CANCER
     Dosage: 2.5 MG, QD, ORAL
     Route: 048
     Dates: start: 20100401, end: 20100801

REACTIONS (5)
  - BONE PAIN [None]
  - MUSCULOSKELETAL PAIN [None]
  - DECREASED APPETITE [None]
  - PAIN IN EXTREMITY [None]
  - NAUSEA [None]
